FAERS Safety Report 21067587 (Version 2)
Quarter: 2022Q3

REPORT INFORMATION
  Report Type: Report from Study
  Country: DE (occurrence: None)
  Receive Date: 20220712
  Receipt Date: 20220717
  Transmission Date: 20221027
  Serious: Yes (Hospitalization)
  Sender: FDA-Public Use
  Company Number: DE-ROCHE-3131921

PATIENT
  Age: 65 Year
  Sex: Male
  Weight: 79 kg

DRUGS (1)
  1. ATEZOLIZUMAB [Suspect]
     Active Substance: ATEZOLIZUMAB
     Indication: Small cell lung cancer extensive stage
     Dosage: LAST DOSE: 24/MAY/2022
     Route: 041
     Dates: start: 20220523

REACTIONS (1)
  - Hepatic infection [Recovered/Resolved]

NARRATIVE: CASE EVENT DATE: 20220623
